FAERS Safety Report 6301380-2 (Version None)
Quarter: 2009Q3

REPORT INFORMATION
  Report Type: 
  Country: None (occurrence: None)
  Receive Date: 20090807
  Receipt Date: 20090806
  Transmission Date: 20100115
  Serious: Yes (Hospitalization)
  Sender: FDA-Public Use
  Company Number: US-ROXANE LABORATORIES, INC.-2009-RO-00771RO

PATIENT
  Sex: Male

DRUGS (5)
  1. PREDNISONE [Suspect]
     Indication: COLITIS ULCERATIVE
     Dosage: 35 MG
     Dates: start: 20080301
  2. PREDNISONE [Suspect]
     Dosage: 20 MG
     Dates: start: 20090101
  3. MERCAPTOPURINE [Suspect]
     Indication: COLITIS ULCERATIVE
     Dates: start: 20090101
  4. MERCAPTOPURINE [Suspect]
     Dates: start: 20090101
  5. HUMIRA [Concomitant]
     Indication: COLITIS ULCERATIVE

REACTIONS (8)
  - BLOOD GLUCOSE FLUCTUATION [None]
  - BLOOD GLUCOSE INCREASED [None]
  - COLITIS ULCERATIVE [None]
  - CONDITION AGGRAVATED [None]
  - DIABETES MELLITUS [None]
  - DRUG INEFFECTIVE [None]
  - FIBROMYALGIA [None]
  - PANCREATITIS [None]
